FAERS Safety Report 7025529-1 (Version None)
Quarter: 2010Q4

REPORT INFORMATION
  Report Type: 
  Country: None (occurrence: None)
  Receive Date: 20101003
  Receipt Date: 20100921
  Transmission Date: 20110411
  Serious: Yes (Other)
  Sender: FDA-Public Use
  Company Number: PHHY2010US57133

PATIENT
  Sex: Female
  Weight: 67.12 kg

DRUGS (10)
  1. RECLAST [Suspect]
     Indication: OSTEOPOROSIS
     Dosage: 5 MG
     Route: 042
     Dates: start: 20100824
  2. VITAMIN D [Concomitant]
     Dosage: UNK
  3. CALCIUM [Concomitant]
     Dosage: UNK
  4. XANAX [Concomitant]
     Dosage: UNK
  5. LEVOTHYROXINE SODIUM [Concomitant]
     Dosage: UNK
  6. ATIVAN [Concomitant]
     Dosage: UNK
  7. SYNTHROID [Concomitant]
     Dosage: 125 MG
     Route: 048
  8. COLACE [Concomitant]
     Dosage: 100 MG
     Route: 048
  9. D3 [Concomitant]
     Dosage: 1000 UNITS
     Route: 048
  10. COUMADIN [Concomitant]
     Dosage: 5 MG
     Route: 048

REACTIONS (15)
  - ABASIA [None]
  - APHAGIA [None]
  - BALANCE DISORDER [None]
  - DIZZINESS [None]
  - DRUG INEFFECTIVE [None]
  - EAR DISORDER [None]
  - FEELING ABNORMAL [None]
  - HEADACHE [None]
  - MALAISE [None]
  - NAUSEA [None]
  - PAIN [None]
  - RETCHING [None]
  - SENSATION OF PRESSURE [None]
  - THROMBOSIS [None]
  - VOMITING [None]
